FAERS Safety Report 13639776 (Version 1)
Quarter: 2017Q2

REPORT INFORMATION
  Report Type: Spontaneous
  Country: US (occurrence: US)
  Receive Date: 20170609
  Receipt Date: 20170609
  Transmission Date: 20170830
  Serious: No
  Sender: FDA-Public Use
  Company Number: US-ROCHE-317131

PATIENT
  Age: 43 Year
  Sex: Female

DRUGS (3)
  1. KLONOPIN [Suspect]
     Active Substance: CLONAZEPAM
     Dosage: VARIOUS DOSES AS NEEDED OF PAST ONE YEAR
     Route: 048
  2. KLONOPIN [Suspect]
     Active Substance: CLONAZEPAM
     Dosage: FREQUENCY : THRICE A DAY AS NEEDED
     Route: 048
  3. KLONOPIN [Suspect]
     Active Substance: CLONAZEPAM
     Indication: ANXIETY
     Route: 048

REACTIONS (3)
  - Fatigue [Unknown]
  - Urticaria [Unknown]
  - Depression [Unknown]

NARRATIVE: CASE EVENT DATE: 20020710
